FAERS Safety Report 7314263-6 (Version None)
Quarter: 2011Q1

REPORT INFORMATION
  Report Type: 
  Country: None (occurrence: None)
  Receive Date: 20110225
  Receipt Date: 20100913
  Transmission Date: 20110831
  Serious: No
  Sender: FDA-Public Use
  Company Number: US-MYLANLABS-2010S1011380

PATIENT
  Age: 14 Year
  Sex: Male

DRUGS (2)
  1. AMNESTEEM [Suspect]
     Indication: ACNE CYSTIC
     Dates: start: 20100301, end: 20100623
  2. AMNESTEEM [Suspect]
     Dates: start: 20100301, end: 20100623

REACTIONS (11)
  - HOSTILITY [None]
  - DRY SKIN [None]
  - MOOD ALTERED [None]
  - ABNORMAL DREAMS [None]
  - MYALGIA [None]
  - MUCOSAL DRYNESS [None]
  - PHOTOSENSITIVITY REACTION [None]
  - AGGRESSION [None]
  - ANXIETY [None]
  - LIP DRY [None]
  - BLOOD TRIGLYCERIDES INCREASED [None]
